FAERS Safety Report 4997961-9 (Version None)
Quarter: 2006Q2

REPORT INFORMATION
  Report Type: 
  Country: None (occurrence: None)
  Receive Date: 20060508
  Receipt Date: 20060426
  Transmission Date: 20061013
  Serious: Yes (Other)
  Sender: FDA-Public Use
  Company Number: 200611644BWH

PATIENT
  Age: 57 Year
  Sex: Male
  Weight: 95.2554 kg

DRUGS (4)
  1. LEVITRA [Suspect]
     Indication: DIABETIC COMPLICATION
     Dosage: 10 MG, ONCE, ORAL
     Route: 048
     Dates: start: 20060210
  2. LEVITRA [Suspect]
     Indication: ERECTILE DYSFUNCTION
     Dosage: 10 MG, ONCE, ORAL
     Route: 048
     Dates: start: 20060210
  3. SEROQUEL [Suspect]
     Indication: ANXIETY
     Dosage: 100 MG, TOTAL DAILY,ORAL
     Route: 048
  4. VIAGRA [Concomitant]

REACTIONS (2)
  - DRUG INTERACTION [None]
  - TACHYCARDIA [None]
